FAERS Safety Report 15572328 (Version 3)
Quarter: 2018Q4

REPORT INFORMATION
  Report Type: Report from Study
  Country: GB (occurrence: GB)
  Receive Date: 20181031
  Receipt Date: 20181217
  Transmission Date: 20190205
  Serious: Yes (Hospitalization, Other)
  Sender: FDA-Public Use
  Company Number: GB-MYLANLABS-2018M1081583

PATIENT
  Sex: Male

DRUGS (1)
  1. LEVETIRACETAM. [Suspect]
     Active Substance: LEVETIRACETAM
     Indication: GENERALISED TONIC-CLONIC SEIZURE
     Dosage: HIGHER DOSE
     Route: 042

REACTIONS (4)
  - Petit mal epilepsy [Unknown]
  - Myoclonic epilepsy [Unknown]
  - Drug ineffective [Unknown]
  - Anger [Unknown]
